FAERS Safety Report 6666314-X (Version None)
Quarter: 2010Q2

REPORT INFORMATION
  Report Type: 
  Country: None (occurrence: None)
  Receive Date: 20100402
  Receipt Date: 20100324
  Transmission Date: 20101027
  Serious: Yes (Other)
  Sender: FDA-Public Use
  Company Number: NO-ELI_LILLY_AND_COMPANY-NO201003005900

PATIENT
  Sex: Female

DRUGS (9)
  1. ZYPREXA [Suspect]
     Indication: MANIA
     Dosage: 5 MG, DAILY (1/D)
     Route: 048
     Dates: start: 20080815
  2. KEPPRA [Concomitant]
     Indication: PARTIAL SEIZURES
     Dosage: 500 MG, 2/D
     Route: 048
     Dates: start: 20080811, end: 20080904
  3. ORFIRIL LONG [Concomitant]
     Indication: PARTIAL SEIZURES
     Dosage: 1200 MG, 2/D
     Route: 048
     Dates: start: 20080817, end: 20080910
  4. AERIUS [Concomitant]
     Indication: SEASONAL ALLERGY
     Dosage: 5 MG, DAILY (1/D)
     Route: 048
  5. EPINAT [Concomitant]
     Indication: PARTIAL SEIZURES
     Dosage: 75 MG, 2/D
     Route: 048
     Dates: start: 20080811, end: 20080821
  6. LAMICTAL CD [Concomitant]
     Indication: PARTIAL SEIZURES
     Dosage: 25 MG, DAILY (1/D)
     Route: 048
     Dates: start: 20080811, end: 20080821
  7. LIPITOR [Concomitant]
     Indication: HYPERCHOLESTEROLAEMIA
     Dosage: 80 MG, DAILY (1/D)
     Route: 048
  8. ALBYL-E [Concomitant]
     Indication: CARDIOVASCULAR DISORDER
     Dosage: 160 MG, DAILY (1/D)
     Route: 048
  9. COZAAR [Concomitant]
     Indication: HYPERTENSION
     Dosage: 1 D/F, DAILY (1/D)
     Route: 048

REACTIONS (3)
  - ARTERIOSCLEROSIS [None]
  - RESPIRATORY DISORDER [None]
  - TRANSIENT ISCHAEMIC ATTACK [None]
